FAERS Safety Report 16553399 (Version 1)
Quarter: 2019Q3

REPORT INFORMATION
  Report Type: Spontaneous
  Country: US (occurrence: US)
  Receive Date: 20190710
  Receipt Date: 20190710
  Transmission Date: 20191004
  Serious: Yes (Other)
  Sender: FDA-Public Use
  Company Number: US-BAUSCH-BL-2019-019392

PATIENT
  Age: 80 Year
  Sex: Female

DRUGS (5)
  1. CARDIZEM CD [Concomitant]
     Active Substance: DILTIAZEM HYDROCHLORIDE
     Indication: ATRIAL FIBRILLATION
     Route: 048
  2. BABY ASPIRIN [Concomitant]
     Active Substance: ASPIRIN
     Indication: PRODUCT USED FOR UNKNOWN INDICATION
     Route: 048
  3. DILTIAZEM HCL EXTENDED-RELEASE CAPSULES, 120 MG [Suspect]
     Active Substance: DILTIAZEM HYDROCHLORIDE
     Indication: PRODUCT USE IN UNAPPROVED INDICATION
  4. NORVASC [Concomitant]
     Active Substance: AMLODIPINE BESYLATE
     Indication: PRODUCT USED FOR UNKNOWN INDICATION
     Dosage: TAKEN ONE DOSE ON 02/JUL/2019 AND ON 03/JUL/2019
     Route: 048
  5. DILTIAZEM HCL EXTENDED-RELEASE CAPSULES, 120 MG [Suspect]
     Active Substance: DILTIAZEM HYDROCHLORIDE
     Indication: ATRIAL FIBRILLATION
     Dosage: 1 CAPSULE IN THE MORNING
     Route: 048
     Dates: start: 20190701, end: 20190702

REACTIONS (3)
  - Product use in unapproved indication [Unknown]
  - Atrial fibrillation [Recovered/Resolved]
  - Peripheral swelling [Recovered/Resolved]

NARRATIVE: CASE EVENT DATE: 20190701
